FAERS Safety Report 17552536 (Version 2)
Quarter: 2020Q1

REPORT INFORMATION
  Report Type: Spontaneous
  Country: US (occurrence: US)
  Receive Date: 20200317
  Receipt Date: 20200330
  Transmission Date: 20200409
  Serious: Yes (Hospitalization, Other)
  Sender: FDA-Public Use
  Company Number: US-PFIZER INC-2020115062

PATIENT
  Age: 26 Year
  Sex: Female
  Weight: 104.26 kg

DRUGS (4)
  1. CYKLOKAPRON [Suspect]
     Active Substance: TRANEXAMIC ACID
     Indication: FACIAL OPERATION
     Dosage: UNK
     Dates: start: 20200219
  2. ESTRADIOL. [Suspect]
     Active Substance: ESTRADIOL
     Indication: GENDER DYSPHORIA
     Dosage: 4 MG, 2X/DAY
     Route: 048
     Dates: start: 2013, end: 20200217
  3. RECOTHROM [Concomitant]
     Active Substance: THROMBIN ALFA
     Indication: HAEMORRHAGE
     Dosage: 10000 IU, UNK(10,000 UNITS APPLIED TOPICALLY TO FACE IN GENERAL AT 12:55 PM)
     Route: 061
     Dates: start: 20200219
  4. CYKLOKAPRON [Suspect]
     Active Substance: TRANEXAMIC ACID
     Indication: PROPHYLAXIS

REACTIONS (7)
  - Cerebrovascular accident [Unknown]
  - Retinal artery occlusion [Unknown]
  - Blood fibrinogen increased [Unknown]
  - Fibrin degradation products increased [Unknown]
  - Blood glucose increased [Recovered/Resolved]
  - Glycosylated haemoglobin increased [Unknown]
  - Blood cholesterol increased [Unknown]

NARRATIVE: CASE EVENT DATE: 20200219
